FAERS Safety Report 18125476 (Version 1)
Quarter: 2020Q3

REPORT INFORMATION
  Report Type: Spontaneous
  Country: MX (occurrence: MX)
  Receive Date: 20200807
  Receipt Date: 20200807
  Transmission Date: 20201103
  Serious: Yes (Other)
  Sender: FDA-Public Use
  Company Number: MX-ANIPHARMA-2020-MX-000039

PATIENT
  Sex: Female
  Weight: 57 kg

DRUGS (2)
  1. ATACAND [Suspect]
     Active Substance: CANDESARTAN CILEXETIL
     Indication: HYPERTENSION
     Dosage: 1 TABLET (16 MG) IN THE MORNING AND 1 TABLET IN THE EVENING / DOSE TEXT: THE DOCTOR TELLS HER TO GRI
     Route: 048
     Dates: start: 202005
  2. ASPIRIN PROTECT [Suspect]
     Active Substance: ASPIRIN
     Dosage: 100 MG DAILY
     Route: 065

REACTIONS (4)
  - Drug interaction [Unknown]
  - Drug ineffective [Unknown]
  - Off label use [Unknown]
  - Blood pressure increased [Unknown]
